FAERS Safety Report 8598159-8 (Version None)
Quarter: 2012Q3

REPORT INFORMATION
  Report Type: 
  Country: None (occurrence: None)
  Receive Date: 20120816
  Receipt Date: 20120808
  Transmission Date: 20120928
  Serious: Yes (Other)
  Sender: FDA-Public Use
  Company Number: PHEH2012US013814

PATIENT
  Age: 31 Year
  Sex: Male

DRUGS (7)
  1. GILENYA [Suspect]
     Indication: RELAPSING-REMITTING MULTIPLE SCLEROSIS
     Dosage: 0.5 MG, QD
     Route: 048
     Dates: start: 20120709
  2. LISINOPRIL [Concomitant]
  3. GABAPENTIN [Concomitant]
  4. METFORMIN HYDROCHLORIDE [Concomitant]
  5. FLEXERIL [Concomitant]
  6. BACLOFEN [Concomitant]
  7. CYMBALTA [Concomitant]

REACTIONS (2)
  - MYOCARDIAL INFARCTION [None]
  - LEFT VENTRICULAR HYPERTROPHY [None]
